FAERS Safety Report 4415160-6 (Version None)
Quarter: 2004Q3

REPORT INFORMATION
  Report Type: 
  Country: None (occurrence: None)
  Receive Date: 20040730
  Receipt Date: 20040722
  Transmission Date: 20050211
  Serious: Yes (Death)
  Sender: FDA-Public Use
  Company Number: US-JNJFOC-20040706325

PATIENT
  Sex: Male

DRUGS (1)
  1. REMINYL [Suspect]

REACTIONS (1)
  - DEATH [None]
